FAERS Safety Report 9308031 (Version 1)
Quarter: 2013Q2

REPORT INFORMATION
  Report Type: Spontaneous
  Country: BR (occurrence: BR)
  Receive Date: 20130524
  Receipt Date: 20130524
  Transmission Date: 20140414
  Serious: Yes (Hospitalization, Other)
  Sender: FDA-Public Use
  Company Number: BR-SANOFI-AVENTIS-2013SA050177

PATIENT
  Sex: Female

DRUGS (6)
  1. LANTUS [Suspect]
     Indication: TYPE 1 DIABETES MELLITUS
     Dosage: DOSE: 20 IU IN THE MORNING AND 6 IU AT NIGHT
     Route: 058
  2. DEVICE NOS [Concomitant]
     Indication: DEVICE THERAPY
  3. HUMALOG [Concomitant]
     Indication: TYPE 1 DIABETES MELLITUS
     Route: 058
  4. ZOLOFT [Concomitant]
     Indication: DEPRESSION
     Dosage: STRENGTH: 50 MG
     Route: 048
     Dates: start: 201301
  5. ACETYLSALICYLIC ACID [Concomitant]
     Indication: ANTICOAGULANT THERAPY
     Route: 048
     Dates: start: 201301
  6. BRILINTA [Concomitant]
     Indication: CARDIAC DISORDER
     Route: 048
     Dates: start: 201301

REACTIONS (1)
  - Infarction [Recovered/Resolved]
